FAERS Safety Report 8860206 (Version 5)
Quarter: 2013Q1

REPORT INFORMATION
  Report Type: Report from Study
  Country: CZ (occurrence: CZ)
  Receive Date: 20121025
  Receipt Date: 20130211
  Transmission Date: 20140127
  Serious: Yes (Hospitalization)
  Sender: FDA-Public Use
  Company Number: CZ-VERTEX PHARMACEUTICAL INC.-2012-023444

PATIENT
  Age: 59 Year
  Sex: Female
  Weight: 78.5 kg

DRUGS (3)
  1. VX-950 (TELAPREVIR) [Suspect]
     Indication: HEPATITIS C
     Dosage: 2250 MG, QD
     Route: 048
     Dates: start: 20120808, end: 20121015
  2. RIBAVIRIN [Suspect]
     Indication: HEPATITIS C
     Dosage: DOSAGE FORM: UNKNOWN, DOSE REDUCED TO 600 MG ONCE DAILY
     Route: 048
     Dates: start: 20120808, end: 20121015
  3. PEGASYS [Suspect]
     Indication: HEPATITIS C
     Dosage: DOSAGE FORM: UNKNOWN
     Route: 058
     Dates: start: 20120808, end: 20121011

REACTIONS (2)
  - Pancytopenia [Recovered/Resolved]
  - Bronchopneumonia [Recovered/Resolved]
